FAERS Safety Report 6905725-1 (Version None)
Quarter: 2010Q3

REPORT INFORMATION
  Report Type: 
  Country: None (occurrence: None)
  Receive Date: 20100804
  Receipt Date: 20100727
  Transmission Date: 20110219
  Serious: Yes (Other)
  Sender: FDA-Public Use
  Company Number: GB-BAYER-201030220GPV

PATIENT
  Age: 32 Year
  Sex: Male

DRUGS (8)
  1. FLUDARABINE [Suspect]
     Indication: ACUTE MYELOID LEUKAEMIA
     Dates: start: 19991101
  2. FLUDARABINE [Suspect]
     Dates: start: 19991201
  3. CYCLOSPORINE [Suspect]
     Indication: CHRONIC GRAFT VERSUS HOST DISEASE
  4. CYCLOSPORINE [Suspect]
     Dates: start: 19991201, end: 20030201
  5. CYTARABINE [Suspect]
     Indication: ACUTE MYELOID LEUKAEMIA
     Dates: start: 19980101
  6. CYTARABINE [Suspect]
     Dates: start: 19991101
  7. CYCLOPHOSPHAMIDE [Suspect]
     Indication: ALLOGENIC BONE MARROW TRANSPLANTATION THERAPY
  8. MELPHALAN [Suspect]
     Indication: STEM CELL TRANSPLANT
     Dates: start: 19990101

REACTIONS (3)
  - ACTINIC KERATOSIS [None]
  - OESOPHAGEAL SQUAMOUS CELL CARCINOMA [None]
  - SWEAT GLAND TUMOUR [None]
